FAERS Safety Report 5121783-1 (Version None)
Quarter: 2006Q4

REPORT INFORMATION
  Report Type: 
  Country: None (occurrence: None)
  Receive Date: 20061003
  Receipt Date: 20060922
  Transmission Date: 20070319
  Serious: Yes (Death)
  Sender: FDA-Public Use
  Company Number: GXKR2006GB05866

PATIENT
  Age: 92 Year
  Sex: Female

DRUGS (6)
  1. ASPIRIN [Suspect]
     Indication: CORONARY ARTERY DISEASE
     Dosage: 75MG, ORAL
     Route: 048
  2. CLOPIDOGREL [Suspect]
     Indication: CORONARY ARTERY DISEASE
     Dosage: 75 MG, ORAL
     Route: 048
     Dates: start: 20051219
  3. FUROSEMIDE [Concomitant]
  4. GTN (GLYCERYL TRINITRATE) [Concomitant]
  5. PERINDOPRIL ERBUMINE [Concomitant]
  6. SIMVASTATIN [Concomitant]

REACTIONS (2)
  - DUODENAL ULCER [None]
  - GASTROINTESTINAL HAEMORRHAGE [None]
